FAERS Safety Report 7013645-X (Version None)
Quarter: 2010Q3

REPORT INFORMATION
  Report Type: 
  Country: None (occurrence: None)
  Receive Date: 20100924
  Receipt Date: 20100913
  Transmission Date: 20110219
  Serious: Yes (Other)
  Sender: FDA-Public Use
  Company Number: US-PFIZER INC-2010106815

PATIENT
  Sex: Female
  Weight: 71.655 kg

DRUGS (3)
  1. XALATAN [Suspect]
     Indication: GLAUCOMA
     Dosage: DAILY AT NIGHT IN BOTH EYES
     Route: 047
  2. KLONOPIN [Concomitant]
     Indication: TREMOR
     Dosage: 0.5 MG, 2X/DAY
     Route: 048
  3. NEURONTIN [Concomitant]
     Indication: FIBROMYALGIA
     Dosage: 100 MG, 2X/DAY
     Route: 048
     Dates: start: 20100801

REACTIONS (1)
  - SLEEP APNOEA SYNDROME [None]
